FAERS Safety Report 15793235 (Version 1)
Quarter: 2019Q1

REPORT INFORMATION
  Report Type: Spontaneous
  Country: US (occurrence: US)
  Receive Date: 20190107
  Receipt Date: 20190107
  Transmission Date: 20190417
  Serious: No
  Sender: FDA-Public Use
  Company Number: US-TEVA-2018-US-988496

PATIENT
  Age: 60 Year
  Sex: Male
  Weight: 68.1 kg

DRUGS (9)
  1. ASPIRIN. [Concomitant]
     Active Substance: ASPIRIN
     Dosage: BLOOD THINNER
  2. NTG [Concomitant]
     Active Substance: NITROGLYCERIN
     Indication: CHEST PAIN
  3. PROAIR RESPICLICK [Suspect]
     Active Substance: ALBUTEROL SULFATE
     Dosage: TWO PUFFS EVERY FOUR HOURS AS NEEDED
  4. ROSUVASTATIN. [Concomitant]
     Active Substance: ROSUVASTATIN
  5. METOPROLOL. [Concomitant]
     Active Substance: METOPROLOL
     Dosage: 25MG IN THE MORNING AND 50MG AT NIGHT
  6. COQ10 [Concomitant]
     Active Substance: UBIDECARENONE
     Dosage: DUE TO ON A STATIN
  7. PAROXETINE. [Concomitant]
     Active Substance: PAROXETINE
     Indication: ANXIETY
  8. PROAIR RESPICLICK [Suspect]
     Active Substance: ALBUTEROL SULFATE
     Indication: WHEEZING
     Dosage: TWO PUFFS EVERY FOUR HOURS AS NEEDED
     Dates: start: 201810, end: 201812
  9. ALPRAZOLAM. [Concomitant]
     Active Substance: ALPRAZOLAM

REACTIONS (5)
  - Product use in unapproved indication [Unknown]
  - Adverse event [Unknown]
  - Intentional product use issue [Unknown]
  - Incorrect dose administered [Unknown]
  - Product storage error [Unknown]

NARRATIVE: CASE EVENT DATE: 201810
